FAERS Safety Report 7061717-6 (Version None)
Quarter: 2010Q4

REPORT INFORMATION
  Report Type: 
  Country: None (occurrence: None)
  Receive Date: 20101026
  Receipt Date: 20101015
  Transmission Date: 20110411
  Serious: Yes (Life-Threatening, Hospitalization)
  Sender: FDA-Public Use
  Company Number: CZ-ROCHE-725359

PATIENT
  Sex: Male

DRUGS (2)
  1. ROACTEMRA [Suspect]
     Indication: RHEUMATOID ARTHRITIS
     Dosage: FORM: INFUSION
     Route: 042
     Dates: start: 20100224, end: 20100623
  2. METHOTREXATE [Concomitant]

REACTIONS (9)
  - ARTHRITIS BACTERIAL [None]
  - CARDIOPULMONARY FAILURE [None]
  - DECUBITUS ULCER [None]
  - EPIDIDYMITIS [None]
  - MULTI-ORGAN FAILURE [None]
  - PULMONARY EMBOLISM [None]
  - SEPSIS [None]
  - THROMBOCYTOPENIA [None]
  - UROSEPSIS [None]
